FAERS Safety Report 6665994-2 (Version None)
Quarter: 2010Q2

REPORT INFORMATION
  Report Type: 
  Country: None (occurrence: None)
  Receive Date: 20100402
  Receipt Date: 20100324
  Transmission Date: 20101027
  Serious: Yes (Other)
  Sender: FDA-Public Use
  Company Number: ES-JNJFOC-20100308158

PATIENT
  Age: 64 Year
  Sex: Male
  Weight: 97 kg

DRUGS (5)
  1. REMICADE [Suspect]
     Indication: PSORIASIS
     Route: 042
  2. REMICADE [Suspect]
     Route: 042
  3. ROTIGOTINE [Concomitant]
     Indication: PARKINSON'S DISEASE
  4. AZILECT [Concomitant]
     Indication: PARKINSON'S DISEASE
  5. SINEMET [Concomitant]
     Indication: PARKINSON'S DISEASE

REACTIONS (1)
  - PARKINSON'S DISEASE [None]
